FAERS Safety Report 10299774 (Version 1)
Quarter: 2014Q3

REPORT INFORMATION
  Report Type: Report from Study
  Country: US (occurrence: BE)
  Receive Date: 20140711
  Receipt Date: 20140711
  Transmission Date: 20150326
  Serious: Yes (Death)
  Sender: FDA-Public Use
  Company Number: BE-PFIZER INC-2014191916

PATIENT
  Age: 73 Year

DRUGS (11)
  1. VASEXTEN [Concomitant]
     Active Substance: BARNIDIPINE
     Dosage: UNK
     Dates: start: 20090623
  2. ZOPLICONE [Concomitant]
     Active Substance: ZOPICLONE
     Dosage: UNK
     Dates: start: 20080701
  3. SOMATROPIN [Suspect]
     Active Substance: SOMATROPIN
     Indication: GROWTH HORMONE DEFICIENCY
     Dosage: 1.2 MG, UNK
     Dates: start: 19951222
  4. HYDROCORTISON [Concomitant]
     Active Substance: HYDROCORTISONE
     Indication: ADRENOCORTICOTROPIC HORMONE DEFICIENCY
     Dosage: UNK
     Dates: start: 19881201
  5. ELTHYRONE [Concomitant]
     Active Substance: LEVOTHYROXINE
     Indication: BLOOD THYROID STIMULATING HORMONE DECREASED
     Dosage: UNK
     Dates: start: 20040708
  6. METHIMAZOLE. [Concomitant]
     Active Substance: METHIMAZOLE
     Indication: THYROIDITIS CHRONIC
     Dosage: UNK
     Dates: start: 20040708
  7. LEVOTHYROXIN [Concomitant]
     Active Substance: LEVOTHYROXINE
     Indication: BLOOD THYROID STIMULATING HORMONE DECREASED
     Dosage: UNK
     Dates: start: 19881201
  8. DUPHASTON [Concomitant]
     Active Substance: DYDROGESTERONE
     Indication: HYPOGONADISM
     Dosage: UNK
     Dates: start: 19881201
  9. LEVOTHYROXIN [Concomitant]
     Active Substance: LEVOTHYROXINE
     Indication: PRIMARY HYPOTHYROIDISM
  10. ETHINYL ESTRADIOL [Concomitant]
     Active Substance: ETHINYL ESTRADIOL
     Indication: HYPOGONADISM
     Dosage: UNK
     Dates: start: 19881201
  11. BISOPROLOL [Concomitant]
     Active Substance: BISOPROLOL
     Dosage: UNK
     Dates: start: 20080701

REACTIONS (1)
  - Death [Fatal]
